FAERS Safety Report 9430879 (Version 1)
Quarter: 2013Q3

REPORT INFORMATION
  Report Type: Spontaneous
  Country: DE (occurrence: None)
  Receive Date: 20130726
  Receipt Date: 20130726
  Transmission Date: 20140515
  Serious: Yes (Death, Other)
  Sender: FDA-Public Use
  Company Number: 2013DE0309

PATIENT
  Sex: Male

DRUGS (10)
  1. KINERET (ANAKINRA), NOT AVAILABLE [Suspect]
     Dates: start: 200310, end: 200503
  2. ETANERCE[T (ETANERCEPT) (ETANERCEPT) [Concomitant]
  3. ABATACEPT (ABATACEPT) (ABATACEPT) [Concomitant]
  4. CERTOLIZUMAB PEGOL (CERTOLIZUMAB PEGOL) (CERTROLIZUMAB PEGOL) [Concomitant]
  5. METHOTREXATE (METHOTREXATE) (METHOTREXATE) [Concomitant]
  6. TOCILIZUMAB (TOCILIZUMAB) (TOCILZIUMAB) [Concomitant]
  7. INFLIXIMAB (INFLIXIMAB) (INFLIXIMAB) [Concomitant]
  8. LEFLUNOMIDE (LEFLUNOMIDE) (LEFLUNOMIDE) [Concomitant]
  9. SALAZOSULFAPYRIDINE (SULFASLAZINE) (SULFASLAZINE) [Concomitant]
  10. AZATHIOPRINE (AZAHIOPRINE) (AZATHIOPRINE) [Concomitant]

REACTIONS (2)
  - Small cell lung cancer [None]
  - Bronchial carcinoma [None]
